FAERS Safety Report 9298600 (Version 1)
Quarter: 2013Q2

REPORT INFORMATION
  Report Type: Spontaneous
  Country: US (occurrence: US)
  Receive Date: 20130520
  Receipt Date: 20130520
  Transmission Date: 20140414
  Serious: Yes (Other)
  Sender: FDA-Public Use
  Company Number: US-BAYER-2013-060226

PATIENT
  Age: 81 Year
  Sex: Male
  Weight: 70.3 kg

DRUGS (3)
  1. BAYER GENUINE ASPIRIN ORIGINAL STRENGTH [Suspect]
     Indication: MALAISE
     Dosage: 1 DF, QD
     Route: 048
     Dates: end: 2012
  2. BAYER ASPIRIN REGIMEN ADULT LOW STRENGTH [Suspect]
     Indication: MALAISE
  3. PLAVIX [Concomitant]

REACTIONS (2)
  - Tinnitus [Recovered/Resolved]
  - Off label use [None]
